FAERS Safety Report 8392458-0 (Version None)
Quarter: 2012Q2

REPORT INFORMATION
  Report Type: 
  Country: None (occurrence: None)
  Receive Date: 20120529
  Receipt Date: 20120522
  Transmission Date: 20120825
  Serious: No
  Sender: FDA-Public Use
  Company Number: US-PFIZER INC-2012057186

PATIENT
  Sex: Female
  Weight: 71.655 kg

DRUGS (10)
  1. LYRICA [Suspect]
     Indication: FIBROMYALGIA
     Dosage: UNK
  2. PAXIL [Suspect]
     Indication: MENTAL DISORDER
     Dosage: UNK
  3. CODEINE SULFATE [Suspect]
     Indication: GALLBLADDER PAIN
     Dosage: UNK
  4. ASPIRIN [Suspect]
     Dosage: UNK
  5. PROZAC [Suspect]
     Indication: MENTAL DISORDER
     Dosage: UNK
  6. SEROQUEL [Concomitant]
     Indication: DEPRESSION
     Dosage: 400 MG, DAILY
  7. SKELAXIN [Suspect]
     Indication: FIBROMYALGIA
     Dosage: UNK
  8. POTASSIUM PENICILLIN G [Suspect]
     Indication: CHOLECYSTITIS INFECTIVE
     Dosage: UNK
  9. ULTRAM [Suspect]
     Indication: FIBROMYALGIA
     Dosage: UNK
  10. BUSPAR [Concomitant]
     Indication: DEPRESSION
     Dosage: 30 MG, 2X/DAY

REACTIONS (2)
  - DRUG HYPERSENSITIVITY [None]
  - DYSPNOEA [None]
